FAERS Safety Report 23341201 (Version 1)
Quarter: 2023Q4

REPORT INFORMATION
  Report Type: Report from Study
  Country: CA (occurrence: CA)
  Receive Date: 20231227
  Receipt Date: 20231227
  Transmission Date: 20240109
  Serious: Yes (Other)
  Sender: FDA-Public Use
  Company Number: CA-CELLTRION INC.-2023CA024396

PATIENT

DRUGS (1)
  1. RITUXIMAB [Suspect]
     Active Substance: RITUXIMAB
     Indication: Anti-GAD antibody
     Dosage: 1000 MILLIGRAM
     Route: 042

REACTIONS (6)
  - Musculoskeletal stiffness [Unknown]
  - Abdominal pain [Unknown]
  - Diarrhoea [Unknown]
  - Pneumonia [Unknown]
  - Off label use [Unknown]
  - Intentional product use issue [Unknown]
